FAERS Safety Report 26185278 (Version 1)
Quarter: 2025Q4

REPORT INFORMATION
  Report Type: Spontaneous
  Country: US (occurrence: US)
  Receive Date: 20251222
  Receipt Date: 20251222
  Transmission Date: 20260118
  Serious: No
  Sender: ROCHE
  Company Number: US-ROCHE-10000457093

PATIENT
  Sex: Female

DRUGS (1)
  1. FARICIMAB [Suspect]
     Active Substance: FARICIMAB
     Indication: Product used for unknown indication

REACTIONS (2)
  - Inflammation [Unknown]
  - Intraocular pressure increased [Unknown]
